FAERS Safety Report 18518780 (Version 4)
Quarter: 2020Q4

REPORT INFORMATION
  Report Type: Report from Study
  Country: CA (occurrence: CA)
  Receive Date: 20201118
  Receipt Date: 20201229
  Transmission Date: 20210114
  Serious: Yes (Other)
  Sender: FDA-Public Use
  Company Number: CA-BAYER-2020-222342

PATIENT
  Sex: Male

DRUGS (1)
  1. STIVARGA [Suspect]
     Active Substance: REGORAFENIB
     Dosage: DAILY DOSE 120 MG FOR 3 WEEKS ON 1 WEEK OFF
     Route: 048

REACTIONS (9)
  - Rash [Recovered/Resolved]
  - Pain in extremity [Recovered/Resolved]
  - Pain [Recovered/Resolved]
  - Scrotal dermatitis [Recovered/Resolved]
  - Off label use [None]
  - Gait disturbance [Recovered/Resolved]
  - Product dose omission issue [None]
  - Scrotal exfoliation [Recovered/Resolved]
  - Skin exfoliation [None]
